FAERS Safety Report 8322188-2 (Version None)
Quarter: 2012Q2

REPORT INFORMATION
  Report Type: 
  Country: None (occurrence: None)
  Receive Date: 20120430
  Receipt Date: 20110819
  Transmission Date: 20120825
  Serious: No
  Sender: FDA-Public Use
  Company Number: US-COVIDIEN/TYCO HEALTHCARE/MALLINCKRODT-T201101565

PATIENT
  Sex: Female
  Weight: 68.027 kg

DRUGS (3)
  1. HYDROCODONE BITARTRATE + ACETAMINOPHEN [Suspect]
     Indication: PAIN
     Dosage: 1-2 Q 6 HRS, PRN
     Route: 048
     Dates: start: 20060101, end: 20110811
  2. REMERON [Concomitant]
     Indication: DECREASED APPETITE
     Dosage: UNK
  3. ALPRAZOLAM [Concomitant]
     Indication: ANXIETY
     Dosage: 1 MG, PRN

REACTIONS (2)
  - DIARRHOEA [None]
  - NAUSEA [None]
